FAERS Safety Report 10403887 (Version 4)
Quarter: 2014Q4

REPORT INFORMATION
  Report Type: Spontaneous
  Country: DE (occurrence: DE)
  Receive Date: 20140822
  Receipt Date: 20141014
  Transmission Date: 20150528
  Serious: Yes (Hospitalization, Other)
  Sender: FDA-Public Use
  Company Number: DE-B.I. PHARMACEUTICALS,INC./RIDGEFIELD-2014-BI-38433DE

PATIENT
  Age: 66 Year
  Sex: Male
  Weight: 74.3 kg

DRUGS (7)
  1. AFATINIB [Suspect]
     Active Substance: AFATINIB
     Dosage: 30 MG
     Route: 048
     Dates: start: 20140724, end: 20140801
  2. FORADIL [Concomitant]
     Active Substance: FORMOTEROL FUMARATE
     Indication: PRODUCT USED FOR UNKNOWN INDICATION
     Dosage: 24 MCG
     Route: 065
  3. ATORVASTATIN [Suspect]
     Active Substance: ATORVASTATIN
     Indication: PRODUCT USED FOR UNKNOWN INDICATION
     Dosage: 10 MG
     Route: 065
  4. ASPIRIN. [Suspect]
     Active Substance: ASPIRIN
     Indication: PRODUCT USED FOR UNKNOWN INDICATION
     Route: 065
  5. RAMIPRIL. [Suspect]
     Active Substance: RAMIPRIL
     Indication: PRODUCT USED FOR UNKNOWN INDICATION
     Dosage: 5 MG
     Route: 065
  6. BUDECORT [Concomitant]
     Active Substance: BUDESONIDE
     Indication: PRODUCT USED FOR UNKNOWN INDICATION
     Dosage: 2 PUF
     Route: 065
  7. AFATINIB [Suspect]
     Active Substance: AFATINIB
     Indication: BRONCHIAL CARCINOMA
     Dosage: 40 MG
     Route: 048
     Dates: start: 20140625, end: 20140723

REACTIONS (17)
  - Ocular icterus [Unknown]
  - Respiratory failure [Unknown]
  - Alveolitis [Unknown]
  - Lung disorder [Unknown]
  - Tongue atrophy [Unknown]
  - Cough [Not Recovered/Not Resolved]
  - Acute hepatic failure [Unknown]
  - Hepatic enzyme increased [Not Recovered/Not Resolved]
  - Hepatic failure [Unknown]
  - Dyspnoea [Unknown]
  - Pyrexia [Not Recovered/Not Resolved]
  - Hypokinesia [Unknown]
  - General physical health deterioration [Unknown]
  - Decreased appetite [Unknown]
  - Body temperature increased [Unknown]
  - Jaundice [Unknown]
  - Pruritus [Unknown]

NARRATIVE: CASE EVENT DATE: 201406
